FAERS Safety Report 8790396 (Version 2)
Quarter: 2013Q4

REPORT INFORMATION
  Report Type: Spontaneous
  Country: US (occurrence: US)
  Receive Date: 20120917
  Receipt Date: 20131101
  Transmission Date: 20140711
  Serious: No
  Sender: FDA-Public Use
  Company Number: US-009507513-1208USA003429

PATIENT
  Age: 21 Year
  Sex: Female
  Weight: 56.69 kg

DRUGS (3)
  1. NUVARING [Suspect]
     Indication: CONTRACEPTION
     Dosage: 1 RING FOR 3 WKS, 1 WK OFF
     Route: 067
  2. MONISTAT [Concomitant]
  3. PENTASA [Concomitant]
     Dosage: 500 MG, BID

REACTIONS (2)
  - Muscle spasms [Unknown]
  - Skin warm [Unknown]
